FAERS Safety Report 14987616 (Version 4)
Quarter: 2018Q3

REPORT INFORMATION
  Report Type: Spontaneous
  Country: JP (occurrence: JP)
  Receive Date: 20180608
  Receipt Date: 20180912
  Transmission Date: 20181010
  Serious: Yes (Hospitalization)
  Sender: FDA-Public Use
  Company Number: JP-BEH-2017084183

PATIENT
  Age: 75 Year
  Sex: Female
  Weight: 41.7 kg

DRUGS (13)
  1. PREDONINE [Concomitant]
     Active Substance: PREDNISOLONE
     Dosage: 5 UNK, UNK
     Route: 048
     Dates: start: 20170908, end: 20170922
  2. PREDONINE [Concomitant]
     Active Substance: PREDNISOLONE
     Indication: IMMUNE THROMBOCYTOPENIC PURPURA
     Dosage: 25 MG, UNK
     Route: 048
     Dates: start: 20170606, end: 20170611
  3. PREDONINE [Concomitant]
     Active Substance: PREDNISOLONE
     Dosage: 15 UNK, UNK
     Route: 048
     Dates: start: 20170830, end: 20170904
  4. PLATELETS [Concomitant]
     Active Substance: HUMAN PLATELET, ALLOGENIC
     Dosage: 400 ML, UNK
     Route: 065
     Dates: start: 20170912, end: 20170915
  5. PREDONINE [Concomitant]
     Active Substance: PREDNISOLONE
     Dosage: 20 UNK, UNK
     Route: 048
     Dates: start: 20170825, end: 20170829
  6. FOSCAVIR [Concomitant]
     Active Substance: FOSCARNET SODIUM
     Dosage: 3000 MG, OD
     Route: 065
     Dates: start: 20170915
  7. VENOGLOBULIN [Concomitant]
     Active Substance: HUMAN IMMUNOGLOBULIN G
     Dosage: 2.5 G, QID
     Route: 065
     Dates: start: 20170915, end: 20170915
  8. GANCICLOVIR. [Suspect]
     Active Substance: GANCICLOVIR
     Indication: CYTOMEGALOVIRUS INFECTION
     Dosage: 125 MG, 12 HOURLY
     Route: 042
     Dates: start: 20170720, end: 20170914
  9. PREDONINE [Concomitant]
     Active Substance: PREDNISOLONE
     Dosage: 30 MG, UNK
     Route: 048
     Dates: start: 20170719, end: 20170824
  10. HIZENTRA [Suspect]
     Active Substance: HUMAN IMMUNOGLOBULIN G
     Indication: HYPOGAMMAGLOBULINAEMIA
     Dosage: 20 ML, SINGLE, 4G
     Route: 058
     Dates: start: 20170908
  11. TENOFOVIR DISOPROXIL FUMARATE. [Concomitant]
     Active Substance: TENOFOVIR DISOPROXIL FUMARATE
     Indication: HEPATITIS B
     Dosage: 300 MG, OD
     Route: 048
     Dates: start: 20170606
  12. PREDONINE [Concomitant]
     Active Substance: PREDNISOLONE
     Dosage: 10 UNK, UNK
     Route: 048
     Dates: start: 20170905, end: 20170907
  13. PREDONINE [Concomitant]
     Active Substance: PREDNISOLONE
     Dosage: 50 MG, UNK
     Route: 048
     Dates: start: 20170612, end: 20170718

REACTIONS (1)
  - Thrombocytopenia [Recovered/Resolved]

NARRATIVE: CASE EVENT DATE: 20170911
